FAERS Safety Report 10306555 (Version 2)
Quarter: 2014Q1

REPORT INFORMATION
  Report Type: Spontaneous
  Country: US (occurrence: None)
  Receive Date: 20120817
  Receipt Date: 20130815
  Transmission Date: 20141002
  Serious: Yes (Hospitalization, Other)
  Sender: FDA-Public Use
  Company Number: ADR-2012-00215

PATIENT
  Sex: Male

DRUGS (1)
  1. LIORESAL [Suspect]
     Indication: MUSCLE SPASTICITY
     Dosage: SEE B5

REACTIONS (14)
  - Muscle spasticity [None]
  - Wound decomposition [None]
  - Implant site erosion [None]
  - Headache [None]
  - Central nervous system infection [None]
  - Wound dehiscence [None]
  - Implant site infection [None]
  - Drug withdrawal syndrome [None]
  - CSF culture positive [None]
  - Culture wound positive [None]
  - Confusional state [None]
  - Mental status changes [None]
  - Implant site discharge [None]
  - Meningitis [None]
